FAERS Safety Report 20311517 (Version 3)
Quarter: 2022Q1

REPORT INFORMATION
  Report Type: Spontaneous
  Country: US (occurrence: None)
  Receive Date: 20220108
  Receipt Date: 20220219
  Transmission Date: 20220423
  Serious: Yes (Death)
  Sender: FDA-Public Use
  Company Number: US-ROCHE-2997290

PATIENT
  Sex: Male

DRUGS (4)
  1. XOLAIR [Suspect]
     Active Substance: OMALIZUMAB
     Indication: Asthma
     Dosage: INJECTION 2 SYRINGES UNDER THE SKIN EVERY 2 WEEKS?STRENGTH: 150MG/ML
     Route: 058
     Dates: start: 20200305, end: 202112
  2. CELECOXIB [Concomitant]
     Active Substance: CELECOXIB
  3. DOXYCYCLINE HYCLATE [Concomitant]
     Active Substance: DOXYCYCLINE HYCLATE
  4. MELOXICAM [Concomitant]
     Active Substance: MELOXICAM

REACTIONS (1)
  - Cardiac failure congestive [Fatal]
